FAERS Safety Report 10078654 (Version 1)
Quarter: 2014Q2

REPORT INFORMATION
  Report Type: Spontaneous
  Country: US (occurrence: US)
  Receive Date: 20140415
  Receipt Date: 20140415
  Transmission Date: 20141212
  Serious: No
  Sender: FDA-Public Use
  Company Number: US-BAUSCH-BL-2013-002466

PATIENT
  Age: 72 Year
  Sex: Female

DRUGS (1)
  1. LEVOBUNOLOL HYDROCHLORIDE OPHTHALMIC SOLUTION USP 0.5% [Suspect]
     Indication: GLAUCOMA
     Dosage: 1 DROP; TWICE A DAY; OPHTHALMIC
     Route: 047
     Dates: start: 201303

REACTIONS (2)
  - Foreign body sensation in eyes [Recovered/Resolved]
  - Eye irritation [Recovered/Resolved]
